FAERS Safety Report 5286975-X (Version None)
Quarter: 2007Q1

REPORT INFORMATION
  Report Type: 
  Country: None (occurrence: None)
  Receive Date: 20070329
  Receipt Date: 20070314
  Transmission Date: 20070707
  Serious: Yes (Death)
  Sender: FDA-Public Use
  Company Number: POMP-10987

PATIENT
  Age: 20 Month
  Sex: Male
  Weight: 10 kg

DRUGS (2)
  1. MYOZYME [Suspect]
     Indication: GLYCOGEN STORAGE DISEASE TYPE II
     Dosage: 20 MG/KG, Q2WKS; IV
     Route: 042
     Dates: start: 20061108, end: 20070228
  2. ALPHA-GLUCOSIDASE (HUMAN, RECOMBINANT, CHO CELLS, GENZYME) [Suspect]
     Indication: GLYCOGEN STORAGE DISEASE TYPE II
     Dosage: 20 MG/KG Q2WKS; IV
     Route: 042
     Dates: start: 20051222, end: 20060101

REACTIONS (6)
  - ATELECTASIS [None]
  - CARDIAC ARREST [None]
  - HYPERTROPHIC CARDIOMYOPATHY [None]
  - MITRAL VALVE INCOMPETENCE [None]
  - PNEUMONIA [None]
  - RHINORRHOEA [None]
